FAERS Safety Report 17158235 (Version 1)
Quarter: 2019Q4

REPORT INFORMATION
  Report Type: Spontaneous
  Country: US (occurrence: US)
  Receive Date: 20191216
  Receipt Date: 20191216
  Transmission Date: 20200122
  Serious: Yes (Death, Other)
  Sender: FDA-Public Use
  Company Number: US-009507513-1912USA004742

PATIENT
  Age: 61 Year
  Sex: Female

DRUGS (21)
  1. BENZTROPINE MESYLATE. [Suspect]
     Active Substance: BENZTROPINE MESYLATE
     Route: 048
  2. COZAAR [Suspect]
     Active Substance: LOSARTAN POTASSIUM
     Route: 048
  3. LORAZEPAM. [Suspect]
     Active Substance: LORAZEPAM
     Route: 048
  4. AMIODARONE [Suspect]
     Active Substance: AMIODARONE
     Route: 048
  5. BUDESONIDE. [Suspect]
     Active Substance: BUDESONIDE
     Route: 048
  6. GABAPENTIN. [Suspect]
     Active Substance: GABAPENTIN
     Route: 048
  7. BUMETANIDE. [Suspect]
     Active Substance: BUMETANIDE
     Route: 048
  8. TAPENTADOL [Suspect]
     Active Substance: TAPENTADOL
     Route: 048
  9. FENTANYL. [Suspect]
     Active Substance: FENTANYL
     Route: 062
  10. FLUTICASONE FUROATE (+) VILANTEROL TRIFENATATE [Suspect]
     Active Substance: FLUTICASONE FUROATE\VILANTEROL TRIFENATATE
     Route: 048
  11. INSULIN LISPRO [Suspect]
     Active Substance: INSULIN LISPRO
     Route: 048
  12. CARVEDILOL. [Suspect]
     Active Substance: CARVEDILOL
     Route: 048
  13. DULOXETINE HYDROCHLORIDE. [Suspect]
     Active Substance: DULOXETINE HYDROCHLORIDE
     Route: 048
  14. METFORMIN [Suspect]
     Active Substance: METFORMIN HYDROCHLORIDE
     Route: 048
  15. METOPROLOL. [Suspect]
     Active Substance: METOPROLOL
     Route: 048
  16. ALBUTEROL. [Suspect]
     Active Substance: ALBUTEROL
     Route: 048
  17. BUPROPION. [Suspect]
     Active Substance: BUPROPION
     Route: 048
  18. ARFORMOTEROL TARTRATE [Suspect]
     Active Substance: ARFORMOTEROL TARTRATE
     Route: 048
  19. SPIRONOLACTONE. [Suspect]
     Active Substance: SPIRONOLACTONE
     Route: 048
  20. ACETAZOLAMIDE. [Suspect]
     Active Substance: ACETAZOLAMIDE
     Route: 048
  21. HALOPERIDOL. [Suspect]
     Active Substance: HALOPERIDOL
     Route: 048

REACTIONS (1)
  - Suspected suicide [Fatal]
